FAERS Safety Report 9563430 (Version 1)
Quarter: 2013Q1

REPORT INFORMATION
  Report Type: Spontaneous
  Country: US (occurrence: None)
  Receive Date: 20121214
  Receipt Date: 20121214
  Transmission Date: 20140127
  Serious: Yes (Other)
  Sender: FDA-Public Use
  Company Number: 1201USA03348

PATIENT
  Age: 40 Year
  Sex: Female

DRUGS (2)
  1. JANUVIA (SITAGLIPTIN PHOSPHATE) FILM-COATED TABLET [Suspect]
     Indication: DIABETES MELLITUS
     Route: 048
     Dates: start: 201101
  2. METFORMIN HYDROCHLORIDE\SAXAGLIPTIN [Suspect]
     Dates: start: 201110

REACTIONS (2)
  - Drug administration error [None]
  - Pancreatitis [None]
